FAERS Safety Report 8656216 (Version 2)
Quarter: 2013Q2

REPORT INFORMATION
  Report Type: Spontaneous
  Country: US (occurrence: US)
  Receive Date: 20120709
  Receipt Date: 20130506
  Transmission Date: 20140414
  Serious: No
  Sender: FDA-Public Use
  Company Number: US-AMGEN-USASP2012034947

PATIENT
  Age: 46 Year
  Sex: Female

DRUGS (3)
  1. ENBREL [Suspect]
     Indication: RHEUMATOID ARTHRITIS
     Dosage: 25 MG TAKES 2 WEEKLY SAME DAY WEEKLY(50 MG WEEKLY)
     Dates: start: 20120511
  2. METHOTREXATE [Concomitant]
     Dosage: 1 CC, DOSE UNKNOWN WEEKLY; ON 1 YEAR
  3. HYDROXYCHLOROQUINE [Concomitant]
     Dosage: 200 MG, TWICE/DAY/1 YEAR

REACTIONS (5)
  - Rubber sensitivity [Recovered/Resolved]
  - Injection site erythema [Recovered/Resolved]
  - Anaemia [Not Recovered/Not Resolved]
  - Injection site swelling [Recovered/Resolved]
  - Injection site reaction [Recovered/Resolved]
